FAERS Safety Report 8783319 (Version 2)
Quarter: 2012Q4

REPORT INFORMATION
  Report Type: 
  Country: US (occurrence: US)
  Receive Date: 20120913
  Receipt Date: 20120913
  Transmission Date: 20130627
  Serious: Yes (Other)
  Sender: FDA-Public Use
  Company Number: US-JNJFOC-20120803651

PATIENT
  Age: 67 Year
  Sex: Male

DRUGS (3)
  1. HYDROCORTISONE [Suspect]
     Indication: SKIN EXFOLIATION
     Dosage: pearl size amount
     Route: 061
  2. HYDROCORTISONE [Suspect]
     Indication: ERYTHEMA
     Dosage: pearl size amount
     Route: 061
  3. AN UNKNOWN MEDICATION [Concomitant]
     Route: 065

REACTIONS (4)
  - Herpes zoster [Recovered/Resolved]
  - Therapeutic response unexpected [Unknown]
  - Off label use [Unknown]
  - Disease recurrence [None]
